FAERS Safety Report 19825910 (Version 1)
Quarter: 2021Q3

REPORT INFORMATION
  Report Type: Spontaneous
  Country: US (occurrence: US)
  Receive Date: 20210911
  Receipt Date: 20210911
  Transmission Date: 20211014
  Serious: Yes (Hospitalization)
  Sender: FDA-Public Use
  Company Number: None

PATIENT
  Age: 62 Year
  Sex: Male
  Weight: 107.46 kg

DRUGS (3)
  1. DARATUMUMAB 7200 MG [Suspect]
     Active Substance: DARATUMUMAB
     Dates: end: 20210908
  2. LENALIDOMIDE 425MG (CC?5013) [Suspect]
     Active Substance: LENALIDOMIDE
     Indication: PRODUCT USED FOR UNKNOWN INDICATION
     Dates: end: 20210907
  3. DEXAMETHASONE 160 MG [Suspect]
     Active Substance: DEXAMETHASONE
     Dates: end: 20210908

REACTIONS (6)
  - Hypoaesthesia [None]
  - Confusional state [None]
  - Dizziness [None]
  - Diarrhoea [None]
  - Abdominal pain [None]
  - Hyperglycaemia [None]

NARRATIVE: CASE EVENT DATE: 20210908
